FAERS Safety Report 19419137 (Version 1)
Quarter: 2021Q2

REPORT INFORMATION
  Report Type: Spontaneous
  Country: JP (occurrence: JP)
  Receive Date: 20210615
  Receipt Date: 20210615
  Transmission Date: 20210717
  Serious: Yes (Other)
  Sender: FDA-Public Use
  Company Number: JP-ORPHANEU-2021002167

PATIENT

DRUGS (2)
  1. UNSPECIFIED CARGLUMIC ACID [Suspect]
     Active Substance: CARGLUMIC ACID
     Indication: HYPERAMMONAEMIA
     Dosage: UNK
  2. UNSPECIFIED CARGLUMIC ACID [Suspect]
     Active Substance: CARGLUMIC ACID
     Indication: HYPERGLYCINAEMIA

REACTIONS (1)
  - Cerebral atrophy [Recovered/Resolved]
